FAERS Safety Report 21588079 (Version 2)
Quarter: 2022Q4

REPORT INFORMATION
  Report Type: Spontaneous
  Country: CN (occurrence: None)
  Receive Date: 20221114
  Receipt Date: 20221121
  Transmission Date: 20230113
  Serious: Yes (Hospitalization, Other)
  Sender: FDA-Public Use
  Company Number: CN-Unichem Pharmaceuticals (USA) Inc-UCM202211-001170

PATIENT
  Age: 38 Year
  Sex: Female

DRUGS (1)
  1. AMITRIPTYLINE HYDROCHLORIDE [Suspect]
     Active Substance: AMITRIPTYLINE HYDROCHLORIDE
     Indication: Overdose
     Dosage: 100 TABLETS

REACTIONS (8)
  - Guillain-Barre syndrome [Recovered/Resolved]
  - Klebsiella infection [Recovered/Resolved]
  - Septic shock [Recovered/Resolved]
  - Pneumonia aspiration [Recovered/Resolved]
  - Bronchiectasis [Recovered/Resolved]
  - Pulmonary oedema [Recovered/Resolved]
  - Coma [Recovered/Resolved]
  - Overdose [Unknown]
